FAERS Safety Report 24734032 (Version 1)
Quarter: 2024Q4

REPORT INFORMATION
  Report Type: Spontaneous
  Country: GB (occurrence: GB)
  Receive Date: 20241214
  Receipt Date: 20241214
  Transmission Date: 20250114
  Serious: Yes (Other)
  Sender: TEVA
  Company Number: GB-MHRA-TPP41033913C10929852YC1733217674358

PATIENT
  Age: 70 Day
  Sex: Male
  Weight: 100 kg

DRUGS (12)
  1. OMEPRAZOLE [Suspect]
     Active Substance: OMEPRAZOLE
     Indication: Product used for unknown indication
     Dosage: TAKE ONE DAILY, 20MG GASTRO-RESISTANT CAPSULES, DAILY DOSE: 20 MG DAILY, DURATION: 11 DAYS
     Route: 048
     Dates: start: 20241118, end: 20241128
  2. ZOPICLONE [Concomitant]
     Active Substance: ZOPICLONE
     Indication: Product used for unknown indication
     Dosage: DAILY DOSE: 1 DOSAGE FORM DAILY  (CAN HAVE SCRIPT EVERY 3 MONTHS),
     Route: 065
     Dates: start: 20240620
  3. FAMOTIDINE [Concomitant]
     Active Substance: FAMOTIDINE
     Indication: Product used for unknown indication
     Dosage: DAILY DOSE: 1 DOSAGE FORM DAILY
     Route: 065
     Dates: start: 20241128
  4. ACETAMINOPHEN [Concomitant]
     Active Substance: ACETAMINOPHEN
     Indication: Pain
     Dosage: TAKE TWO 4 TIMES/DAY WHEN REQUIRED FOR PAIN, DAILY DOSE: 8 DOSAGE FORM DAILY
     Route: 065
     Dates: start: 20241128, end: 20241202
  5. SEA WATER [Concomitant]
     Active Substance: SEA WATER
     Indication: Product used for unknown indication
     Dosage: AS DIRECTED TO REGULARLY CLEAN NASAL PASSAGE AF...
     Route: 045
     Dates: start: 20231023
  6. CYCLIZINE [Concomitant]
     Active Substance: CYCLIZINE
     Indication: Nausea
     Dosage: PLEASE TAKE ONE EVERY 6-8 HOURS FOR NAUSEA
     Route: 065
     Dates: start: 20241104
  7. POLYETHYLENE GLYCOL 3350\POTASSIUM CHLORIDE\SODIUM BICARBONATE\SODIUM [Concomitant]
     Active Substance: POLYETHYLENE GLYCOL 3350\POTASSIUM CHLORIDE\SODIUM BICARBONATE\SODIUM CHLORIDE
     Indication: Product used for unknown indication
     Dosage: TAKE THE CONTENTS OF ONE SACHET UP TO THREE TIMES A DAY AS NEEDED F...
     Route: 065
     Dates: start: 20240703
  8. BETAMETHASONE VALERATE\FUSIDIC ACID [Concomitant]
     Active Substance: BETAMETHASONE VALERATE\FUSIDIC ACID
     Indication: Product used for unknown indication
     Dosage: APPLY TWICE DAILY, DAILY DOSE: 2 DOSAGE FORM DAILY
     Route: 065
     Dates: start: 20241104, end: 20241105
  9. FENBID [Concomitant]
     Indication: Ill-defined disorder
     Dosage: TIME INTERVAL: 0.33333333 DAYS: APPLY TO THE AFFECTED AREA(S) THREE TIMES A DAY...
     Route: 065
     Dates: start: 20241118
  10. ATORVASTATIN [Concomitant]
     Active Substance: ATORVASTATIN
     Indication: Product used for unknown indication
     Dosage: TAKE ONE DAILY FOR CHOLESTEROL, DAILY DOSE: 1 DOSAGE FORM DAILY
     Dates: start: 20240103
  11. LEVOTHYROXINE [Concomitant]
     Active Substance: LEVOTHYROXINE
     Indication: Product used for unknown indication
     Dosage: 175MCG DAILY
     Route: 065
     Dates: start: 20231023
  12. AMOXICILLIN\CLAVULANATE POTASSIUM [Concomitant]
     Active Substance: AMOXICILLIN\CLAVULANATE POTASSIUM
     Indication: Product used for unknown indication
     Dosage: TIME INTERVAL: 0.33333333 DAYS: TAKE ONE THREE TIMES A DAY, DAILY DOSE: 3 DOSAGE FORM DAILY
     Route: 065
     Dates: start: 20241003, end: 20241010

REACTIONS (1)
  - Joint swelling [Recovering/Resolving]

NARRATIVE: CASE EVENT DATE: 20241128
